FAERS Safety Report 10709512 (Version 1)
Quarter: 2015Q1

REPORT INFORMATION
  Report Type: Spontaneous
  Country: US (occurrence: None)
  Receive Date: 20150113
  Receipt Date: 20150113
  Transmission Date: 20150721
  Serious: Yes (Disabling)
  Sender: FDA-Public Use
  Company Number: None

PATIENT
  Age: 64 Year
  Sex: Female
  Weight: 58.51 kg

DRUGS (1)
  1. LYRICA [Suspect]
     Active Substance: PREGABALIN
     Indication: PAIN IN EXTREMITY
     Dosage: FROM 1X/NIGHT UP TO 2X/2 DAILY ?TWICE DAILY, TAKEN BY MOUTH
     Route: 048
     Dates: start: 20141208, end: 20141229

REACTIONS (3)
  - Abdominal distension [None]
  - Urinary incontinence [None]
  - Bronchitis [None]

NARRATIVE: CASE EVENT DATE: 20141208
